FAERS Safety Report 9402782 (Version 1)
Quarter: 2013Q3

REPORT INFORMATION
  Report Type: Spontaneous
  Country: US (occurrence: None)
  Receive Date: 20130715
  Receipt Date: 20130715
  Transmission Date: 20140515
  Serious: Yes (Life-Threatening, Hospitalization, Disabling, Other)
  Sender: FDA-Public Use
  Company Number: None

PATIENT
  Age: 32 Year
  Sex: Male
  Weight: 122.47 kg

DRUGS (1)
  1. CIPROFLOXACIN [Suspect]
     Indication: CHOLECYSTITIS INFECTIVE
     Dosage: ONE TABLET
     Route: 048
     Dates: start: 20060505, end: 20060511

REACTIONS (3)
  - Pancreatitis [None]
  - Hepatitis [None]
  - Diabetes mellitus [None]
